FAERS Safety Report 15308644 (Version 2)
Quarter: 2025Q3

REPORT INFORMATION
  Report Type: Spontaneous
  Country: US (occurrence: US)
  Receive Date: 20180822
  Receipt Date: 20250910
  Transmission Date: 20251020
  Serious: No
  Sender: TARO
  Company Number: US-TARO-2017TAR00938

PATIENT
  Sex: Female

DRUGS (1)
  1. METRONIDAZOLE [Suspect]
     Active Substance: METRONIDAZOLE
     Indication: Rosacea
     Route: 065

REACTIONS (4)
  - Product substitution issue [Recovered/Resolved]
  - Reaction to excipient [Not Recovered/Not Resolved]
  - Skin reaction [Not Recovered/Not Resolved]
  - Skin irritation [Unknown]
